FAERS Safety Report 10017529 (Version 3)
Quarter: 2014Q2

REPORT INFORMATION
  Report Type: Report from Study
  Country: CA (occurrence: CA)
  Receive Date: 20140318
  Receipt Date: 20140407
  Transmission Date: 20141212
  Serious: Yes (Hospitalization)
  Sender: FDA-Public Use
  Company Number: CA-JNJFOC-20140308470

PATIENT
  Age: 20 Year
  Sex: Male
  Weight: 57.2 kg

DRUGS (1)
  1. REMICADE [Suspect]
     Indication: CROHN^S DISEASE
     Dosage: INDUCTION DOSE FOLLOWED BY EVERY 8 WEEKS
     Route: 042
     Dates: start: 20131205

REACTIONS (4)
  - Rectal haemorrhage [Unknown]
  - Frequent bowel movements [Unknown]
  - Inflammation [Unknown]
  - Crohn^s disease [Recovered/Resolved]
